FAERS Safety Report 17462779 (Version 1)
Quarter: 2020Q1

REPORT INFORMATION
  Report Type: Spontaneous
  Country: US (occurrence: US)
  Receive Date: 20200213
  Receipt Date: 20200213
  Transmission Date: 20200409
  Serious: Yes (Hospitalization)
  Sender: FDA-Public Use
  Company Number: None

PATIENT
  Age: 69 Year
  Sex: Male
  Weight: 90 kg

DRUGS (1)
  1. ARIPIPRAZOLE (APIPIPRAZOLE 20MG TAB) [Suspect]
     Active Substance: ARIPIPRAZOLE
     Indication: DEPRESSION
     Route: 048
     Dates: start: 20190522, end: 20190823

REACTIONS (6)
  - Dyspnoea [None]
  - Hypoaesthesia [None]
  - Paraesthesia [None]
  - Vision blurred [None]
  - Dizziness [None]
  - Chest pain [None]

NARRATIVE: CASE EVENT DATE: 20190906
